FAERS Safety Report 4427726-8 (Version None)
Quarter: 2004Q3

REPORT INFORMATION
  Report Type: 
  Country: None (occurrence: None)
  Receive Date: 20040812
  Receipt Date: 20040806
  Transmission Date: 20050211
  Serious: No
  Sender: FDA-Public Use
  Company Number: 2004-06-0611

PATIENT
  Age: 80 Year
  Sex: Female
  Weight: 55 kg

DRUGS (3)
  1. AERIUS (DESLORATADINE) TABLETS 'LIKE CLARINEX' [Suspect]
     Indication: HYPERSENSITIVITY
     Dosage: 5 MG QD ORAL
     Route: 048
     Dates: start: 20040505, end: 20040505
  2. DOLIPRANE [Concomitant]
  3. CYCLO 3 CREAM [Concomitant]

REACTIONS (2)
  - ANGIONEUROTIC OEDEMA [None]
  - DRUG HYPERSENSITIVITY [None]
